FAERS Safety Report 7957464-6 (Version None)
Quarter: 2011Q4

REPORT INFORMATION
  Report Type: 
  Country: None (occurrence: None)
  Receive Date: 20111130
  Receipt Date: 20111114
  Transmission Date: 20120403
  Serious: Yes (Hospitalization)
  Sender: FDA-Public Use
  Company Number: 1107079

PATIENT
  Age: 15 Year
  Sex: Female
  Weight: 60 kg

DRUGS (11)
  1. ACETAMINOPHEN [Concomitant]
  2. DILAUDID [Concomitant]
  3. NEUPOGEN [Concomitant]
  4. GENTAMICIN SULFATE [Suspect]
     Indication: PRODUCT USED FOR UNKNOWN INDICATION
     Dosage: 100.0MG, 1 EVERY 8 HOUR(S) INTRAVENOUS (NOT OTHERWISE SPECIFIED)
     Route: 042
  5. PIPERACILLIN AND TAZOBACTAM [Concomitant]
  6. VANCOMYCIN HCL [Suspect]
     Indication: PRODUCT USED FOR UNKNOWN INDICATION
     Dosage: 1.0GRAM, 1 EVERY 12 HOUR(S) INTRAVENOUS (NOT OTHERWISE SPECIFIED), 750.0MG, 1 EVERY 12 HOUR(S), INTR
     Route: 042
  7. GENTAMICIN SULFATE [Concomitant]
  8. VANCOMYCIN HCL [Concomitant]
  9. CEFTAZIDIME [Concomitant]
  10. HYDROMORPHONE HCL [Concomitant]
  11. SEPTRA [Concomitant]

REACTIONS (2)
  - TUBULOINTERSTITIAL NEPHRITIS [None]
  - RENAL FAILURE [None]
